FAERS Safety Report 5323108-5 (Version None)
Quarter: 2007Q2

REPORT INFORMATION
  Report Type: 
  Country: None (occurrence: None)
  Receive Date: 20070507
  Receipt Date: 20070427
  Transmission Date: 20071010
  Serious: Yes (Hospitalization, Other)
  Sender: FDA-Public Use
  Company Number: 07H-167-0312526-00

PATIENT
  Age: 41 Year
  Sex: Male

DRUGS (8)
  1. NOREPINEPHRINE INJECTION (NOREPINEPHRINE BITARTRATE INJECTION) (NOREPI [Suspect]
     Indication: DRUG USE FOR UNKNOWN INDICATION
  2. CLOZARIL [Suspect]
     Indication: SCHIZOPHRENIA
     Dosage: 150 MG, ONCE A DAY, ORAL
     Route: 048
  3. ENOXAPARIN SODIUM [Concomitant]
  4. FLUOXETINE [Concomitant]
  5. IMIPENEM (IMIPENEM) [Concomitant]
  6. METRONIDAZOLE [Concomitant]
  7. MIDAZOLAM HCL [Concomitant]
  8. MORPHINE [Concomitant]

REACTIONS (3)
  - DRUG INTERACTION [None]
  - PNEUMONIA [None]
  - SEDATION [None]
